FAERS Safety Report 25834190 (Version 1)
Quarter: 2025Q3

REPORT INFORMATION
  Report Type: Spontaneous
  Country: EU (occurrence: EU)
  Receive Date: 20250923
  Receipt Date: 20250923
  Transmission Date: 20251020
  Serious: Yes (Hospitalization)
  Sender: ROCHE
  Company Number: None

PATIENT
  Age: 30 Year
  Sex: Female
  Weight: 80 kg

DRUGS (1)
  1. OCREVUS [Suspect]
     Active Substance: OCRELIZUMAB
     Indication: Multiple sclerosis
     Route: 042
     Dates: start: 20210101, end: 20230901

REACTIONS (2)
  - Sepsis [Recovered/Resolved]
  - Tooth loss [Recovered/Resolved with Sequelae]

NARRATIVE: CASE EVENT DATE: 20230830
